FAERS Safety Report 6229988-3 (Version None)
Quarter: 2009Q2

REPORT INFORMATION
  Report Type: 
  Country: None (occurrence: None)
  Receive Date: 20090615
  Receipt Date: 20090605
  Transmission Date: 20091009
  Serious: Yes (Hospitalization)
  Sender: FDA-Public Use
  Company Number: SE-ABBOTT-09P-150-0578276-00

PATIENT
  Sex: Male

DRUGS (3)
  1. ERGENYL TABLETS [Suspect]
     Indication: EPILEPSY
     Route: 048
     Dates: start: 20040101, end: 20090201
  2. TOPIMAX [Concomitant]
     Indication: DRUG USE FOR UNKNOWN INDICATION
  3. CORTISONE [Concomitant]
     Indication: DRUG USE FOR UNKNOWN INDICATION

REACTIONS (7)
  - DEMENTIA [None]
  - DRUG INEFFECTIVE [None]
  - ENCEPHALOPATHY [None]
  - EPILEPSY [None]
  - FATIGUE [None]
  - INCONTINENCE [None]
  - PARKINSONISM [None]
